FAERS Safety Report 25571713 (Version 1)
Quarter: 2025Q3

REPORT INFORMATION
  Report Type: Spontaneous
  Country: EU (occurrence: EU)
  Receive Date: 20250717
  Receipt Date: 20250717
  Transmission Date: 20251020
  Serious: Yes (Other)
  Sender: PFIZER
  Company Number: EU-Orion Corporation ORION PHARMA-TREX2025-0108

PATIENT
  Age: 48 Year
  Sex: Female

DRUGS (2)
  1. METHOTREXATE SODIUM [Suspect]
     Active Substance: METHOTREXATE SODIUM
     Indication: Rheumatoid arthritis
  2. PROGESTOGEN-ONLY PILL [Concomitant]
     Indication: Contraception

REACTIONS (4)
  - Anogenital dysplasia [Unknown]
  - Cervical dysplasia [Unknown]
  - Vaginal dysplasia [Unknown]
  - Vulvovaginal warts [Unknown]
